FAERS Safety Report 6551617-X (Version None)
Quarter: 2010Q1

REPORT INFORMATION
  Report Type: 
  Country: None (occurrence: None)
  Receive Date: 20100126
  Receipt Date: 20100115
  Transmission Date: 20100710
  Serious: Yes (Life-Threatening, Hospitalization)
  Sender: FDA-Public Use
  Company Number: FR-KINGPHARMUSA00001-K201000051

PATIENT
  Age: 65 Year
  Sex: Male

DRUGS (10)
  1. ALTACE [Suspect]
     Dosage: UNK
     Route: 048
  2. KETOPROFEN [Suspect]
     Indication: PROCEDURAL PAIN
     Dosage: UNK
     Route: 048
     Dates: start: 20090209, end: 20090217
  3. GLUCOPHAGE [Suspect]
     Indication: TYPE 2 DIABETES MELLITUS
     Dosage: UNK
     Route: 048
     Dates: end: 20090217
  4. ISOPTIN [Concomitant]
  5. TAHOR [Concomitant]
  6. APROVEL [Concomitant]
  7. ESIDRIX [Concomitant]
  8. UMULINE [Concomitant]
  9. HUMALOG [Concomitant]
  10. NORFLOXACIN [Concomitant]

REACTIONS (18)
  - ANOXIA [None]
  - AZOTAEMIA [None]
  - BLOOD CREATININE INCREASED [None]
  - BLOOD LACTIC ACID INCREASED [None]
  - BLOOD PH DECREASED [None]
  - DEHYDRATION [None]
  - DYSPNOEA [None]
  - HAEMODYNAMIC INSTABILITY [None]
  - HYPERKALAEMIA [None]
  - HYPOTENSION [None]
  - LACTIC ACIDOSIS [None]
  - LIVEDO RETICULARIS [None]
  - PULMONARY EMBOLISM [None]
  - RENAL FAILURE ACUTE [None]
  - RESPIRATORY DISTRESS [None]
  - SEPSIS [None]
  - TACHYCARDIA [None]
  - VOMITING [None]
